FAERS Safety Report 9638012 (Version 5)
Quarter: 2013Q4

REPORT INFORMATION
  Report Type: Spontaneous
  Country: GB (occurrence: GB)
  Receive Date: 20131022
  Receipt Date: 20131119
  Transmission Date: 20140711
  Serious: Yes (Other)
  Sender: FDA-Public Use
  Company Number: PHFR2013GB005811

PATIENT
  Age: 66 Year
  Sex: Male

DRUGS (12)
  1. CLOZARIL [Suspect]
     Indication: SCHIZOPHRENIA
     Dosage: UNK
     Route: 048
     Dates: start: 20131007
  2. CLOZARIL [Suspect]
     Dosage: UNK
     Dates: start: 20131021
  3. CLOZARIL [Suspect]
     Dosage: 150 MG, DAILY
     Route: 048
     Dates: start: 20131107
  4. OLANZAPINE SANDOZ [Suspect]
     Dosage: UNK
  5. CARBIMAZOLE [Suspect]
     Dosage: UNK
  6. ENALAPRIL [Concomitant]
     Dosage: 2.5 MG, UNK
     Route: 048
     Dates: start: 20131020
  7. ASPIRIN [Concomitant]
     Dosage: 75 MG, UNK
     Route: 048
     Dates: start: 20130915
  8. LORAZEPAM [Concomitant]
     Dosage: 4 MG, UNK
     Route: 048
     Dates: start: 20131008
  9. LACTULOSE [Concomitant]
     Dosage: 20 MG, UNK
     Route: 048
     Dates: start: 20131008
  10. BISOPROLOL [Concomitant]
     Dosage: 5 MG, UNK
     Route: 048
     Dates: start: 20131025
  11. AMISULPRIDE [Concomitant]
     Dosage: 700 MG, UNK
     Route: 048
     Dates: start: 20131029
  12. AMOXYCILLIN [Concomitant]
     Dosage: 1500 MG, UNK
     Route: 048
     Dates: start: 20131107

REACTIONS (7)
  - Drug interaction [Unknown]
  - Cholestasis [Unknown]
  - Liver function test abnormal [Recovering/Resolving]
  - Hyperthyroidism [Recovering/Resolving]
  - Blood thyroid stimulating hormone decreased [Unknown]
  - Thyroxine free increased [Unknown]
  - Platelet count decreased [Not Recovered/Not Resolved]
